FAERS Safety Report 7371425-X (Version None)
Quarter: 2011Q1

REPORT INFORMATION
  Report Type: 
  Country: None (occurrence: None)
  Receive Date: 20110324
  Receipt Date: 20110316
  Transmission Date: 20110831
  Serious: Yes (Other)
  Sender: FDA-Public Use
  Company Number: DE-RANBAXY-2011RR-42934

PATIENT
  Age: 84 Year
  Sex: Female

DRUGS (3)
  1. CEFUROXIME [Suspect]
     Indication: VIRAL INFECTION
     Dosage: UNK
     Dates: start: 20110306
  2. TRAMADOL [Concomitant]
     Indication: BONE PAIN
  3. LYRICA [Concomitant]

REACTIONS (4)
  - ASTHENIA [None]
  - AGITATION [None]
  - HALLUCINATION [None]
  - NERVOUSNESS [None]
